FAERS Safety Report 8246541-0 (Version None)
Quarter: 2012Q1

REPORT INFORMATION
  Report Type: 
  Country: None (occurrence: None)
  Receive Date: 20120330
  Receipt Date: 20120321
  Transmission Date: 20120608
  Serious: Yes (Other)
  Sender: FDA-Public Use
  Company Number: PR-JNJFOC-20120311933

PATIENT

DRUGS (4)
  1. PREZISTA [Suspect]
     Indication: HIV INFECTION
     Route: 065
  2. NORVIR [Suspect]
     Indication: HIV INFECTION
     Route: 065
  3. ISENTRESS [Concomitant]
     Indication: HIV INFECTION
     Route: 065
  4. TRUVADA [Concomitant]
     Indication: HIV INFECTION
     Route: 065

REACTIONS (1)
  - THROMBOCYTOPENIA [None]
